FAERS Safety Report 9167497 (Version 1)
Quarter: 2013Q1

REPORT INFORMATION
  Report Type: Spontaneous
  Country: US (occurrence: US)
  Receive Date: 20130318
  Receipt Date: 20130318
  Transmission Date: 20140127
  Serious: Yes (Hospitalization)
  Sender: FDA-Public Use
  Company Number: US-BAYER-2013-030663

PATIENT
  Age: 19 Year
  Sex: Female
  Weight: 113.38 kg

DRUGS (12)
  1. YASMIN [Suspect]
  2. YAZ [Suspect]
  3. CIPROFLOXACIN [Concomitant]
     Dosage: 500 MG, UNK
     Route: 048
  4. BUSPIRONE [Concomitant]
     Indication: ANXIETY
     Dosage: 10 MG, UNK
     Route: 048
  5. RANITIDIN [Concomitant]
     Indication: GASTROOESOPHAGEAL REFLUX DISEASE
     Dosage: 300 MG, DAILY
     Route: 048
  6. MIRTAZAPINE [Concomitant]
     Indication: DEPRESSION
     Dosage: 15 MG, DAILY
  7. IMIPRAMINE [Concomitant]
     Indication: DEPRESSION
     Dosage: 25 UNK, UNK
     Route: 048
  8. ZOLOFT [Concomitant]
     Indication: DEPRESSION
     Dosage: 100 MG, DAILY
     Route: 048
  9. BACLOFEN [Concomitant]
     Dosage: 10 MG, 10 MG 1/1/2
     Route: 048
  10. AMBIEN [Concomitant]
     Indication: SLEEP DISORDER THERAPY
     Dosage: 10 MG, UNK
     Route: 048
  11. GYOLAX [Concomitant]
  12. RISPERDAL [Concomitant]
     Indication: ANXIETY
     Dosage: 1 MG, UNK
     Route: 048

REACTIONS (1)
  - Deep vein thrombosis [None]
